FAERS Safety Report 21425412 (Version 1)
Quarter: 2022Q4

REPORT INFORMATION
  Report Type: Report from Study
  Country: US (occurrence: US)
  Receive Date: 20221008
  Receipt Date: 20221008
  Transmission Date: 20230113
  Serious: No
  Sender: FDA-Public Use
  Company Number: US-ABBVIE-4138984

PATIENT
  Age: 39 Year
  Sex: Female

DRUGS (5)
  1. SKYRIZI [Suspect]
     Active Substance: RISANKIZUMAB-RZAA
     Indication: Psoriasis
     Route: 058
     Dates: start: 20220617
  2. CLOBETASOL EMOLLIENT [Concomitant]
     Indication: Product used for unknown indication
  3. PFIZER COVID-19 VACCINE (EUA) [Concomitant]
     Indication: COVID-19 immunisation
  4. PNEUMOVAX 23 [Concomitant]
     Active Substance: PNEUMOCOCCAL VACCINE, POLYVALENT 23
     Indication: Product used for unknown indication
     Dosage: 23 26MCG/0.5 SYRINGE
  5. FLUBLOK QUAD [Concomitant]
     Indication: Product used for unknown indication

REACTIONS (1)
  - Therapeutic product effect decreased [Not Recovered/Not Resolved]

NARRATIVE: CASE EVENT DATE: 20220701
